FAERS Safety Report 5400619-5 (Version None)
Quarter: 2007Q3

REPORT INFORMATION
  Report Type: 
  Country: None (occurrence: None)
  Receive Date: 20070730
  Receipt Date: 20070404
  Transmission Date: 20080115
  Serious: No
  Sender: FDA-Public Use
  Company Number: A0646472A

PATIENT
  Age: 45 Year
  Sex: Male

DRUGS (3)
  1. ZANTAC 150 [Suspect]
     Route: 048
     Dates: start: 20070227, end: 20070227
  2. PREDNISONE TAB [Suspect]
     Route: 048
     Dates: start: 20070227
  3. BENADRYL [Concomitant]
     Dates: start: 20070227

REACTIONS (2)
  - RASH ERYTHEMATOUS [None]
  - REACTION TO COLOURING [None]
